FAERS Safety Report 18898886 (Version 1)
Quarter: 2021Q1

REPORT INFORMATION
  Report Type: Spontaneous
  Country: US (occurrence: US)
  Receive Date: 20210215
  Receipt Date: 20210215
  Transmission Date: 20210420
  Serious: Yes (Death)
  Sender: FDA-Public Use
  Company Number: None

PATIENT
  Sex: Female

DRUGS (14)
  1. BENZONATATE 100MG [Concomitant]
     Active Substance: BENZONATATE
     Dates: start: 20210111
  2. PRAVASTATIN. [Concomitant]
     Active Substance: PRAVASTATIN
     Dates: start: 20191110
  3. MYCOPHENOLIC ACID 360MG DR [Concomitant]
     Dates: start: 20200221
  4. TACROLIMUS. [Suspect]
     Active Substance: TACROLIMUS
     Indication: IMMUNOSUPPRESSION
     Dates: start: 20200714
  5. ASPIRIN 81MG EC [Concomitant]
     Dates: start: 20200116
  6. NIFEDIPINE 30MG [Concomitant]
     Active Substance: NIFEDIPINE
     Dates: start: 20200129
  7. GABAPENTIN 300MG [Concomitant]
     Active Substance: GABAPENTIN
     Dates: start: 20190916
  8. TACROLIMUS 5MG [Concomitant]
     Active Substance: TACROLIMUS
     Dates: start: 20200922
  9. LEVOFLOXACIN 500MG [Concomitant]
     Active Substance: LEVOFLOXACIN
     Dates: start: 20201229
  10. OYSTER CALCIUM 500MG [Concomitant]
     Dates: start: 20200320
  11. MYCOPHENOLIC ACID. [Suspect]
     Active Substance: MYCOPHENOLIC ACID
     Route: 048
     Dates: start: 20200221
  12. AMMONIUM LACTATE 12% CREAM [Concomitant]
     Active Substance: AMMONIUM LACTATE
     Dates: start: 20201230
  13. PRENISONE 5MG [Concomitant]
     Dates: start: 20191223
  14. VALGANCIDOVIR 450MG [Concomitant]
     Dates: start: 20191223

REACTIONS (1)
  - COVID-19 [None]
